FAERS Safety Report 5302760-4 (Version None)
Quarter: 2007Q2

REPORT INFORMATION
  Report Type: 
  Country: None (occurrence: None)
  Receive Date: 20070419
  Receipt Date: 20070416
  Transmission Date: 20071010
  Serious: Yes (Hospitalization)
  Sender: FDA-Public Use
  Company Number: JP-PFIZER INC-2007030302

PATIENT
  Age: 72 Year
  Sex: Female

DRUGS (2)
  1. AZULFIDINE EN-TABS [Suspect]
     Indication: RHEUMATOID ARTHRITIS
     Route: 048
     Dates: start: 20070201, end: 20070301
  2. PREDNISOLONE [Concomitant]
     Route: 048

REACTIONS (3)
  - ANOREXIA [None]
  - ECZEMA [None]
  - WHITE BLOOD CELL COUNT DECREASED [None]
